FAERS Safety Report 16676898 (Version 4)
Quarter: 2022Q1

REPORT INFORMATION
  Report Type: Spontaneous
  Country: PT (occurrence: PT)
  Receive Date: 20190807
  Receipt Date: 20220317
  Transmission Date: 20220423
  Serious: Yes (Life-Threatening, Hospitalization, Other)
  Sender: FDA-Public Use
  Company Number: PT-BASI-0306-19

PATIENT
  Age: 80 Year
  Sex: Male
  Weight: 60 kg

DRUGS (15)
  1. FENTANYL [Interacting]
     Active Substance: FENTANYL
     Indication: Induction of anaesthesia
     Dosage: 100 MICROGRAM
     Route: 065
  2. FENTANYL [Interacting]
     Active Substance: FENTANYL
     Dosage: 150 MICROGRAM
     Route: 065
  3. MIDAZOLAM [Interacting]
     Active Substance: MIDAZOLAM
     Indication: Premedication
     Dosage: 3 MILLIGRAM
     Route: 065
     Dates: start: 20180614
  4. MIDAZOLAM [Interacting]
     Active Substance: MIDAZOLAM
     Indication: Anaesthetic premedication
  5. ACETAMINOPHEN [Interacting]
     Active Substance: ACETAMINOPHEN
     Indication: Analgesic therapy
     Dosage: 1000 MILLIGRAM
     Route: 065
  6. REMIFENTANIL [Interacting]
     Active Substance: REMIFENTANIL
     Indication: Maintenance of anaesthesia
     Dosage: 0.15 MICROGRAM/KILOGRAM (0.15 MICROGRAM/KILOGRAM (0.15 MICROGRAM/KILOGRAM,0.15 MINUTE))
     Route: 042
  7. REMIFENTANIL [Interacting]
     Active Substance: REMIFENTANIL
     Dosage: 0.15 MICROGRAM/KILOGRAM (0.15 MICROGRAM/KILOGRAM (0.15 MICROGRAM/KILOGRAM,0.15 MINUTE))
     Route: 005
  8. METAMIZOLE [Interacting]
     Active Substance: METAMIZOLE
     Indication: Analgesic therapy
     Dosage: 2000 MILLIGRAM
     Route: 065
  9. PROPOFOL [Interacting]
     Active Substance: PROPOFOL
     Indication: Induction of anaesthesia
     Dosage: 150 MILLIGRAM
     Route: 065
  10. PROPOFOL [Interacting]
     Active Substance: PROPOFOL
     Indication: General anaesthesia
     Dosage: 15 MILLIGRAM
     Route: 065
  11. PARECOXIB [Interacting]
     Active Substance: PARECOXIB
     Indication: Analgesic therapy
     Dosage: 40 MILLIGRAM
     Route: 065
  12. ROCURONIUM [Interacting]
     Active Substance: ROCURONIUM BROMIDE
     Indication: Induction of anaesthesia
     Dosage: 20 MILLIGRAM (0.33 MG / KG)
     Route: 065
  13. ROCURONIUM [Interacting]
     Active Substance: ROCURONIUM BROMIDE
     Dosage: 50 MILLIGRAM (0.83 MG / KG)
     Route: 042
  14. SEVOFLURANE [Interacting]
     Active Substance: SEVOFLURANE
     Indication: Maintenance of anaesthesia
     Dosage: UNK (1,0-1,2% IN A MIX OF 45% OF O2 AND AIR)
     Route: 055
  15. SUGAMMADEX [Concomitant]
     Active Substance: SUGAMMADEX
     Indication: Product used for unknown indication
     Dosage: 200 MILLIGRAM
     Route: 065

REACTIONS (4)
  - Neuromuscular block prolonged [Recovered/Resolved]
  - Respiratory acidosis [Unknown]
  - Hypertension [Unknown]
  - Drug interaction [Recovered/Resolved]
